FAERS Safety Report 25640177 (Version 1)
Quarter: 2025Q3

REPORT INFORMATION
  Report Type: Spontaneous
  Country: KR (occurrence: KR)
  Receive Date: 20250804
  Receipt Date: 20250804
  Transmission Date: 20251020
  Serious: Yes (Other)
  Sender: OTSUKA
  Company Number: KR-OTSUKA-2025_018629

PATIENT
  Age: 17 Year
  Sex: Male

DRUGS (21)
  1. BUSULFAN [Suspect]
     Active Substance: BUSULFAN
     Indication: Osteosarcoma
     Route: 065
  2. BUSULFAN [Suspect]
     Active Substance: BUSULFAN
     Indication: Metastases to lung
  3. BUSULFAN [Suspect]
     Active Substance: BUSULFAN
     Indication: Stem cell transplant
  4. BUSULFAN [Suspect]
     Active Substance: BUSULFAN
     Indication: Bone marrow conditioning regimen
  5. MELPHALAN [Suspect]
     Active Substance: MELPHALAN
     Indication: Osteosarcoma
     Dosage: 140 MG/M2, DAILY (ON DAY -3)
     Route: 065
  6. MELPHALAN [Suspect]
     Active Substance: MELPHALAN
     Indication: Metastases to lung
     Dosage: 70 MG/M2, DAILY (-6 DAYS)
     Route: 065
  7. MELPHALAN [Suspect]
     Active Substance: MELPHALAN
     Indication: Stem cell transplant
     Dosage: 140 MG/M2, DAILY (ON DAY-7), HDC 1ST
     Route: 065
  8. MELPHALAN [Suspect]
     Active Substance: MELPHALAN
     Indication: Bone marrow conditioning regimen
  9. CISPLATIN [Suspect]
     Active Substance: CISPLATIN
     Indication: Osteosarcoma
     Dosage: 120 MG/M2, DAILY (DAY 1)
     Route: 065
  10. CISPLATIN [Suspect]
     Active Substance: CISPLATIN
     Indication: Metastases to lung
  11. ADRIAMYCIN [Suspect]
     Active Substance: DOXORUBICIN HYDROCHLORIDE
     Indication: Osteosarcoma
     Dosage: 25 MG/M2, DAILY (DAYS 1, 2, 3)
     Route: 065
  12. ADRIAMYCIN [Suspect]
     Active Substance: DOXORUBICIN HYDROCHLORIDE
     Indication: Metastases to lung
  13. METHOTREXATE SODIUM [Suspect]
     Active Substance: METHOTREXATE SODIUM
     Indication: Osteosarcoma
     Dosage: 12 G/M2, DAILY (FOR DAYS 22, 29)
     Route: 065
  14. METHOTREXATE SODIUM [Suspect]
     Active Substance: METHOTREXATE SODIUM
     Indication: Metastases to lung
  15. IFOSFAMIDE [Suspect]
     Active Substance: IFOSFAMIDE
     Indication: Osteosarcoma
     Dosage: 1500 MG/M2, DAILY (ON DAYS 1,2,3), NEOADJUVANT THERAPY
     Route: 065
  16. IFOSFAMIDE [Suspect]
     Active Substance: IFOSFAMIDE
     Indication: Metastases to lung
     Dosage: 1800 MG/M2, DAILY (ON DAYS 1-5), ADJUVANT THERAPY
     Route: 065
  17. CARBOPLATIN [Suspect]
     Active Substance: CARBOPLATIN
     Indication: Osteosarcoma
     Dosage: 635 MG/M2, DAILY (ON DAY 3), NEOADJUVANT THERAPY
     Route: 065
  18. CARBOPLATIN [Suspect]
     Active Substance: CARBOPLATIN
     Indication: Metastases to lung
     Dosage: 400 MG/M2, DAILY (ON DAYS -8 TO -5), 1ST HDC
     Route: 065
  19. CARBOPLATIN [Suspect]
     Active Substance: CARBOPLATIN
     Dosage: 120 MG/M2, DAILY (D-9), 1ST HDC)
     Route: 065
  20. ETOPOSIDE [Suspect]
     Active Substance: ETOPOSIDE
     Indication: Osteosarcoma
     Dosage: 100 MG/M2, DAILY (ON DAYS 1, 2, 3), NEOADJUVANT THERAPY
     Route: 065
  21. ETOPOSIDE [Suspect]
     Active Substance: ETOPOSIDE
     Indication: Metastases to lung
     Dosage: 200 MG/M2, DAILY (ON DAYS -8 TO -5) 1ST HDC
     Route: 065

REACTIONS (4)
  - Deafness [Unknown]
  - Mucosal inflammation [Unknown]
  - Febrile neutropenia [Unknown]
  - Product use in unapproved indication [Unknown]
